FAERS Safety Report 23100008 (Version 1)
Quarter: 2023Q4

REPORT INFORMATION
  Report Type: Spontaneous
  Country: US (occurrence: US)
  Receive Date: 20231024
  Receipt Date: 20231024
  Transmission Date: 20240109
  Serious: No
  Sender: FDA-Public Use
  Company Number: US-PFIZER INC-202300335593

PATIENT
  Sex: Male

DRUGS (6)
  1. BRAFTOVI [Suspect]
     Active Substance: ENCORAFENIB
     Indication: Malignant melanoma
     Dosage: UNK (PRODUCT DOSE 450/45)
     Dates: start: 20231019, end: 20231020
  2. BRAFTOVI [Suspect]
     Active Substance: ENCORAFENIB
     Dosage: UNK (REDUCED DOSE 300/30)
  3. MEKTOVI [Suspect]
     Active Substance: BINIMETINIB
     Indication: Malignant melanoma
     Dosage: UNK (PRODUCT DOSE 450/45)
     Dates: start: 20231019, end: 20231020
  4. MEKTOVI [Suspect]
     Active Substance: BINIMETINIB
     Dosage: UNK (REDUCED DOSE 300/30)
  5. TAFINLAR [Concomitant]
     Active Substance: DABRAFENIB MESYLATE
     Dosage: UNK
     Dates: start: 20230601, end: 20231006
  6. MEKINIST [Concomitant]
     Active Substance: TRAMETINIB DIMETHYL SULFOXIDE
     Dosage: UNK
     Dates: start: 20230601, end: 20231006

REACTIONS (2)
  - Dyspnoea [Unknown]
  - Blood creatinine increased [Unknown]

NARRATIVE: CASE EVENT DATE: 20231009
